FAERS Safety Report 6068225-X (Version None)
Quarter: 2009Q1

REPORT INFORMATION
  Report Type: 
  Country: None (occurrence: None)
  Receive Date: 20090206
  Receipt Date: 20090126
  Transmission Date: 20090719
  Serious: Yes (Other)
  Sender: FDA-Public Use
  Company Number: US-WYE-H07879409

PATIENT
  Sex: Female
  Weight: 64.92 kg

DRUGS (7)
  1. PRISTIQ [Suspect]
     Indication: DEPRESSION
     Route: 048
     Dates: start: 20090121
  2. CLONAZEPAM [Concomitant]
     Dosage: UNKNOWN
  3. MINERALS NOS/VITAMINS NOS [Concomitant]
     Dosage: UNKNOWN
  4. ACIPHEX [Concomitant]
     Dosage: UNKNOWN
  5. SINGULAIR [Concomitant]
     Dosage: UNKNOWN
  6. TRAZODONE HCL [Concomitant]
     Dosage: UNKNOWN
  7. TOPAMAX [Concomitant]
     Dosage: UNKNOWN

REACTIONS (5)
  - ANXIETY [None]
  - APATHY [None]
  - IMPAIRED WORK ABILITY [None]
  - THINKING ABNORMAL [None]
  - UNEVALUABLE EVENT [None]
